FAERS Safety Report 5516146-0 (Version None)
Quarter: 2007Q4

REPORT INFORMATION
  Report Type: 
  Country: None (occurrence: None)
  Receive Date: 20071114
  Receipt Date: 20061229
  Transmission Date: 20080405
  Serious: No
  Sender: FDA-Public Use
  Company Number: A0632807A

PATIENT
  Age: 64 Year
  Sex: Male

DRUGS (11)
  1. COMMIT [Suspect]
  2. LANTUS [Concomitant]
  3. WELLBUTRIN [Concomitant]
  4. VERAPAMIL [Concomitant]
  5. TRICOR [Concomitant]
  6. HYZAAR [Concomitant]
  7. FLOMAX [Concomitant]
  8. CRESTOR [Concomitant]
  9. OXAZEPAM [Concomitant]
  10. ASPIRIN [Concomitant]
  11. ALEVE [Concomitant]

REACTIONS (1)
  - BLOOD GLUCOSE INCREASED [None]
